FAERS Safety Report 9475797 (Version 1)
Quarter: 2013Q3

REPORT INFORMATION
  Report Type: Spontaneous
  Country: US (occurrence: US)
  Receive Date: 20130826
  Receipt Date: 20130826
  Transmission Date: 20140515
  Serious: No
  Sender: FDA-Public Use
  Company Number: US-PFIZER INC-2013244651

PATIENT
  Age: 8 Month
  Sex: Male
  Weight: 11.34 kg

DRUGS (1)
  1. INFANT ADVIL CONCENTRATED DROPS [Suspect]
     Indication: TEETHING
     Dosage: 1.25 ML, AS NEEDED
     Route: 048
     Dates: start: 20130817, end: 20130820

REACTIONS (1)
  - Rash [Not Recovered/Not Resolved]
